FAERS Safety Report 19524024 (Version 1)
Quarter: 2021Q3

REPORT INFORMATION
  Report Type: Spontaneous
  Country: US (occurrence: US)
  Receive Date: 20210712
  Receipt Date: 20210712
  Transmission Date: 20211014
  Serious: Yes (Other)
  Sender: FDA-Public Use
  Company Number: US-ENDO PHARMACEUTICALS INC-2021-005402

PATIENT
  Age: 66 Year
  Sex: Male

DRUGS (4)
  1. ZANTAC [Suspect]
     Active Substance: RANITIDINE HYDROCHLORIDE
     Indication: ABDOMINAL PAIN LOWER
     Dosage: 75 MG, DAILY
     Route: 065
     Dates: start: 200501, end: 201706
  2. RANITIDINE HYDROCHLORIDE. [Suspect]
     Active Substance: RANITIDINE HYDROCHLORIDE
     Indication: ABDOMINAL PAIN LOWER
     Dosage: 150 MG, DAILY
     Route: 065
     Dates: start: 200501, end: 201706
  3. ZANTAC [Suspect]
     Active Substance: RANITIDINE HYDROCHLORIDE
     Indication: ABDOMINAL PAIN LOWER
     Dosage: 75 MG, DAILY
     Route: 065
     Dates: start: 200501, end: 201706
  4. RANITIDINE. [Suspect]
     Active Substance: RANITIDINE
     Indication: ABDOMINAL PAIN LOWER
     Dosage: 150 MG, DAILY
     Route: 065
     Dates: start: 200501, end: 201706

REACTIONS (1)
  - Colorectal cancer stage II [Not Recovered/Not Resolved]

NARRATIVE: CASE EVENT DATE: 20170601
